FAERS Safety Report 11359324 (Version 1)
Quarter: 2015Q3

REPORT INFORMATION
  Report Type: Spontaneous
  Country: US (occurrence: None)
  Receive Date: 20150807
  Receipt Date: 20150807
  Transmission Date: 20151125
  Serious: No
  Sender: FDA-Public Use
  Company Number: None

PATIENT
  Sex: Female
  Weight: 72.1 kg

DRUGS (8)
  1. SENSIPAR [Suspect]
     Active Substance: CINACALCET HYDROCHLORIDE
     Indication: PARATHYROID DISORDER
     Dosage: 1 PILL
     Route: 048
     Dates: start: 2011
  2. ATIVAN [Concomitant]
     Active Substance: LORAZEPAM
  3. GENERIC IMODIUM [Concomitant]
  4. ABILIFY [Concomitant]
     Active Substance: ARIPIPRAZOLE
  5. LAMICTAL [Concomitant]
     Active Substance: LAMOTRIGINE
  6. OMIPRAZOLE [Concomitant]
  7. RENVELA [Concomitant]
     Active Substance: SEVELAMER CARBONATE
  8. DITROPAN [Concomitant]
     Active Substance: OXYBUTYNIN CHLORIDE

REACTIONS (2)
  - Faeces discoloured [None]
  - Diarrhoea [None]
